FAERS Safety Report 14505845 (Version 1)
Quarter: 2018Q1

REPORT INFORMATION
  Report Type: Spontaneous
  Country: US (occurrence: US)
  Receive Date: 20180207
  Receipt Date: 20180207
  Transmission Date: 20180509
  Serious: Yes (Other)
  Sender: FDA-Public Use
  Company Number: None

PATIENT

DRUGS (2)
  1. EPLERENONE. [Suspect]
     Active Substance: EPLERENONE
  2. LISINOPRIL. [Suspect]
     Active Substance: LISINOPRIL

REACTIONS (4)
  - Asthenia [None]
  - Lethargy [None]
  - Gait disturbance [None]
  - Blood potassium increased [None]
